FAERS Safety Report 10073346 (Version 2)
Quarter: 2014Q2

REPORT INFORMATION
  Report Type: Report from Study
  Country: US (occurrence: US)
  Receive Date: 20140411
  Receipt Date: 20140411
  Transmission Date: 20141212
  Serious: Yes (Other)
  Sender: FDA-Public Use
  Company Number: US-PFIZER INC-2014099555

PATIENT
  Age: 12 Year
  Sex: Male

DRUGS (1)
  1. MORPHINE SULFATE [Suspect]

REACTIONS (3)
  - Respiratory disorder [Unknown]
  - Unresponsive to stimuli [Unknown]
  - Toxicity to various agents [Unknown]
